FAERS Safety Report 5735187-1 (Version None)
Quarter: 2008Q2

REPORT INFORMATION
  Report Type: 
  Country: None (occurrence: None)
  Receive Date: 20080512
  Receipt Date: 20080424
  Transmission Date: 20081010
  Serious: Yes (Other)
  Sender: FDA-Public Use
  Company Number: JP-ASTRAZENECA-2008SE02344

PATIENT
  Age: 73 Year
  Sex: Male
  Weight: 80 kg

DRUGS (11)
  1. BLOPRESS [Suspect]
     Indication: CARDIAC FAILURE CHRONIC
     Route: 048
     Dates: start: 20070307
  2. BASSAMIN(ASPIRIN/DIALUMINATE) [Concomitant]
     Indication: THROMBOSIS PROPHYLAXIS
     Route: 048
  3. SELOKEN [Concomitant]
     Indication: HYPERTENSION
     Route: 048
     Dates: end: 20070626
  4. SELOKEN [Concomitant]
     Route: 048
     Dates: start: 20070725
  5. MUCOSTA [Concomitant]
     Indication: PROPHYLAXIS
     Route: 048
     Dates: start: 20060208
  6. LIPITOR [Concomitant]
     Indication: HYPERLIPIDAEMIA
     Route: 048
     Dates: start: 20060208
  7. NORVASC [Concomitant]
     Indication: HYPERTENSION
     Route: 048
  8. LENDORMIN [Concomitant]
     Indication: INSOMNIA
     Route: 048
  9. BIO-THREE [Concomitant]
     Indication: ENTEROCOLITIS
     Route: 048
     Dates: start: 20070307, end: 20070313
  10. KAMAG G [Concomitant]
     Indication: CONSTIPATION
     Route: 048
     Dates: start: 20070502, end: 20070626
  11. KAMAG G [Concomitant]
     Route: 048
     Dates: start: 20070919

REACTIONS (3)
  - ASTHMA [None]
  - BRONCHOSTENOSIS [None]
  - PHARYNGOLARYNGEAL PAIN [None]
